FAERS Safety Report 13838419 (Version 1)
Quarter: 2017Q3

REPORT INFORMATION
  Report Type: Spontaneous
  Country: US (occurrence: US)
  Receive Date: 20170804
  Receipt Date: 20170804
  Transmission Date: 20171127
  Serious: Yes (Other)
  Sender: FDA-Public Use
  Company Number: None

PATIENT
  Age: 28 Year
  Sex: Female
  Weight: 58.5 kg

DRUGS (2)
  1. ADDERYAL BUSPERION [Concomitant]
  2. MIRENA [Suspect]
     Active Substance: LEVONORGESTREL
     Indication: CONTRACEPTION
     Dosage: QUANTITY:1 1;OTHER FREQUENCY:ONCE;?
     Route: 067
     Dates: start: 20150520, end: 20170804

REACTIONS (2)
  - Dental caries [None]
  - Tooth disorder [None]

NARRATIVE: CASE EVENT DATE: 20160707
